FAERS Safety Report 13049345 (Version 1)
Quarter: 2016Q4

REPORT INFORMATION
  Report Type: Spontaneous
  Country: US (occurrence: US)
  Receive Date: 20161221
  Receipt Date: 20161221
  Transmission Date: 20170207
  Serious: No
  Sender: FDA-Public Use
  Company Number: US-009507513-1612USA002889

PATIENT
  Age: 83 Year
  Sex: Female

DRUGS (1)
  1. FOSAMAX [Suspect]
     Active Substance: ALENDRONATE SODIUM
     Dosage: UNK
     Dates: end: 2011

REACTIONS (2)
  - Gastrooesophageal reflux disease [Unknown]
  - Jaw disorder [Unknown]
